FAERS Safety Report 16200524 (Version 12)
Quarter: 2021Q4

REPORT INFORMATION
  Report Type: Spontaneous
  Country: US (occurrence: US)
  Receive Date: 20190416
  Receipt Date: 20211104
  Transmission Date: 20220303
  Serious: Yes (Other)
  Sender: FDA-Public Use
  Company Number: US-PFIZER INC-2019156025

PATIENT
  Age: 70 Year
  Sex: Female

DRUGS (1)
  1. LYRICA [Suspect]
     Active Substance: PREGABALIN
     Dosage: 150 MG, THREE TIMES A DAY (SIG: 2 CAPSULES TID (THREE TIMES A DAY) 30 DAYS)
     Route: 048

REACTIONS (11)
  - Drug dependence [Unknown]
  - Pneumonia [Unknown]
  - Cerebrovascular accident [Unknown]
  - Neuropathy peripheral [Unknown]
  - Dyspnoea [Unknown]
  - Speech disorder [Unknown]
  - Dizziness [Unknown]
  - Balance disorder [Unknown]
  - Gait disturbance [Unknown]
  - Mobility decreased [Unknown]
  - Pain [Unknown]
